FAERS Safety Report 4579660-0 (Version None)
Quarter: 2005Q1

REPORT INFORMATION
  Report Type: 
  Country: None (occurrence: None)
  Receive Date: 20050210
  Receipt Date: 20050127
  Transmission Date: 20050727
  Serious: Yes (Hospitalization)
  Sender: FDA-Public Use
  Company Number: B0320168A

PATIENT
  Sex: Female

DRUGS (3)
  1. VENTOLIN [Suspect]
     Dosage: INHALED
     Route: 055
  2. BECONASE [Suspect]
     Dosage: INHALED
     Route: 055
  3. CANDESARTAN CILEXETIL (CANDESARTAN CILEXETIL) [Suspect]

REACTIONS (21)
  - ANTEPARTUM HAEMORRHAGE [None]
  - BLADDER AGENESIS [None]
  - CONGENITAL FOOT MALFORMATION [None]
  - CONGENITAL JOINT MALFORMATION [None]
  - CRANIAL SUTURES WIDENING [None]
  - DOUBLE URETER [None]
  - DRUG EXPOSURE DURING PREGNANCY [None]
  - FOETAL GROWTH RETARDATION [None]
  - FOETAL HEART RATE ABNORMAL [None]
  - HYPOSPADIAS [None]
  - JOINT CONTRACTURE [None]
  - KIDNEY ENLARGEMENT [None]
  - MULTIPLE CONGENITAL ABNORMALITIES [None]
  - NEONATAL ANURIA [None]
  - NEONATAL HYPOTENSION [None]
  - PREMATURE BABY [None]
  - PULMONARY CONGESTION [None]
  - RENAL DISORDER [None]
  - SKULL MALFORMATION [None]
  - SOLITARY KIDNEY [None]
  - THERAPY NON-RESPONDER [None]
